FAERS Safety Report 12912614 (Version 1)
Quarter: 2016Q4

REPORT INFORMATION
  Report Type: Spontaneous
  Country: FR (occurrence: FR)
  Receive Date: 20161104
  Receipt Date: 20161104
  Transmission Date: 20170207
  Serious: Yes (Hospitalization)
  Sender: FDA-Public Use
  Company Number: FR-BAYER-2016-210146

PATIENT
  Age: 82 Year
  Sex: Female

DRUGS (5)
  1. OFLOCET [Suspect]
     Active Substance: OFLOXACIN
     Indication: OTITIS EXTERNA
     Dosage: 2 DF, QD
     Route: 001
     Dates: start: 20160804
  2. AMOXICILLIN W/CLAVULANIC ACID [Concomitant]
     Active Substance: AMOXICILLIN\CLAVULANIC ACID
     Dosage: UNK
  3. CEFTAZIDIME. [Suspect]
     Active Substance: CEFTAZIDIME
     Indication: OTITIS EXTERNA
     Dosage: 2 G, TID
     Route: 042
     Dates: start: 20160804
  4. ARIXTRA [Suspect]
     Active Substance: FONDAPARINUX SODIUM
     Indication: THROMBOSIS
     Dosage: 7.5 MG, QD
     Route: 058
     Dates: start: 20160824
  5. CIFLOX [Suspect]
     Active Substance: CIPROFLOXACIN
     Indication: OTITIS EXTERNA
     Dosage: 500 MG, BID
     Route: 048
     Dates: start: 20160728

REACTIONS (2)
  - Deafness [Not Recovered/Not Resolved]
  - Vertigo [Recovered/Resolved]

NARRATIVE: CASE EVENT DATE: 20160907
